FAERS Safety Report 7391017-6 (Version None)
Quarter: 2011Q2

REPORT INFORMATION
  Report Type: 
  Country: None (occurrence: None)
  Receive Date: 20110404
  Receipt Date: 20110329
  Transmission Date: 20111010
  Serious: No
  Sender: FDA-Public Use
  Company Number: US-PFIZER INC-2011069750

PATIENT
  Sex: Female

DRUGS (5)
  1. LISINOPRIL [Suspect]
     Dosage: UNK
  2. CELEBREX [Suspect]
     Dosage: UNK
  3. LIPITOR [Suspect]
     Dosage: UNK
  4. PLAVIX [Suspect]
     Dosage: UNK
  5. METOPROLOL [Suspect]
     Dosage: UNK

REACTIONS (2)
  - PAIN [None]
  - ARTHRITIS [None]
